FAERS Safety Report 6944443-0 (Version None)
Quarter: 2010Q3

REPORT INFORMATION
  Report Type: 
  Country: None (occurrence: None)
  Receive Date: 20100827
  Receipt Date: 20100817
  Transmission Date: 20110219
  Serious: Yes (Death)
  Sender: FDA-Public Use
  Company Number: US-PFIZER INC-2010079673

PATIENT
  Sex: Female
  Weight: 65.76 kg

DRUGS (4)
  1. ALPRAZOLAM [Suspect]
     Dosage: UNK
  2. ETHANOL [Suspect]
     Dosage: UNK
  3. METHADONE [Suspect]
     Dosage: UNK
  4. COCAINE [Suspect]
     Dosage: UNK

REACTIONS (1)
  - DRUG TOXICITY [None]
